FAERS Safety Report 19542764 (Version 2)
Quarter: 2021Q3

REPORT INFORMATION
  Report Type: Spontaneous
  Country: ES (occurrence: ES)
  Receive Date: 20210713
  Receipt Date: 20210719
  Transmission Date: 20211014
  Serious: Yes (Other)
  Sender: FDA-Public Use
  Company Number: ES-PFIZER INC-2021795359

PATIENT
  Age: 62 Year
  Sex: Female

DRUGS (2)
  1. METHOTREXATE SODIUM. [Suspect]
     Active Substance: METHOTREXATE SODIUM
     Indication: CUTANEOUS T-CELL LYMPHOMA
     Dosage: 50 MILLIGRAM
     Route: 058
  2. ROMIDEPSIN. [Suspect]
     Active Substance: ROMIDEPSIN
     Indication: CUTANEOUS T-CELL LYMPHOMA
     Dosage: 14 MG/M2, CYCLIC  (3 CYCLE)
     Route: 041

REACTIONS (8)
  - Neoplasm progression [Unknown]
  - Myalgia [Unknown]
  - Product use issue [Unknown]
  - Nausea [Unknown]
  - Off label use [Unknown]
  - Gastrointestinal toxicity [Unknown]
  - Hepatotoxicity [Unknown]
  - Pancytopenia [Unknown]
